FAERS Safety Report 6094617-9 (Version None)
Quarter: 2009Q1

REPORT INFORMATION
  Report Type: 
  Country: None (occurrence: None)
  Receive Date: 20090226
  Receipt Date: 20090218
  Transmission Date: 20090719
  Serious: Yes (Disabling, Other)
  Sender: FDA-Public Use
  Company Number: PHEH2008US10881

PATIENT
  Sex: Female
  Weight: 50 kg

DRUGS (2)
  1. GLEEVEC [Suspect]
     Indication: GASTROINTESTINAL STROMAL TUMOUR
     Dosage: 400 MG, QD
     Route: 048
     Dates: start: 20080702, end: 20081013
  2. GLEEVEC [Suspect]
     Dosage: 100 MG, QD
     Route: 048
     Dates: start: 20081104, end: 20081201

REACTIONS (5)
  - CACHEXIA [None]
  - MALNUTRITION [None]
  - NAUSEA [None]
  - PERICARDIAL EFFUSION [None]
  - WEIGHT DECREASED [None]
